FAERS Safety Report 7833573-7 (Version None)
Quarter: 2011Q4

REPORT INFORMATION
  Report Type: 
  Country: None (occurrence: None)
  Receive Date: 20111020
  Receipt Date: 20111004
  Transmission Date: 20120403
  Serious: Yes (Hospitalization, Other)
  Sender: FDA-Public Use
  Company Number: JPI-P-002712

PATIENT
  Age: 69 Year
  Sex: Female
  Weight: 72.5755 kg

DRUGS (15)
  1. XYREM [Suspect]
     Indication: NARCOLEPSY
     Dosage: 4.5 GM (2.25 GM, 2 IN 1 D), ORAL, 10 GM (5 GM, 2 IN 1 D), ORAL
     Route: 048
     Dates: start: 20071205
  2. XYREM [Suspect]
     Indication: SLEEP DISORDER
     Dosage: 4.5 GM (2.25 GM, 2 IN 1 D), ORAL, 10 GM (5 GM, 2 IN 1 D), ORAL
     Route: 048
     Dates: start: 20071205
  3. POTASSIUM CHLORIDE [Concomitant]
  4. MONTELUKAST SODIUM [Concomitant]
  5. MODAFINIL [Concomitant]
  6. XYREM [Suspect]
  7. DIGOXIN [Concomitant]
  8. CLOPIDOGREL BISULFATE [Concomitant]
  9. CARVEDILOL [Concomitant]
  10. LISINOPRIL [Concomitant]
  11. THYROID TAB [Concomitant]
  12. LAMOTRIGINE [Concomitant]
  13. ANASTROLZOLE [Concomitant]
  14. ESTERIFIED ESTROGENS AND METHYLTESTOSTERONE [Concomitant]
  15. UNSPECIFIED ASTHMA INHALERS [Concomitant]

REACTIONS (3)
  - BREAST CANCER [None]
  - MIDDLE INSOMNIA [None]
  - INITIAL INSOMNIA [None]
